FAERS Safety Report 4554296-6 (Version None)
Quarter: 2005Q1

REPORT INFORMATION
  Report Type: 
  Country: None (occurrence: None)
  Receive Date: 20050118
  Receipt Date: 20040809
  Transmission Date: 20050727
  Serious: Yes (Hospitalization, Other)
  Sender: FDA-Public Use
  Company Number: 376424

PATIENT
  Age: 66 Year
  Sex: Male

DRUGS (4)
  1. DILATREND [Suspect]
     Indication: HYPERTENSION
     Route: 048
     Dates: start: 20021215, end: 20040517
  2. ISOPTIN [Concomitant]
     Dates: start: 20020615
  3. ACE INHIBITOR [Concomitant]
  4. DIURETICS [Concomitant]

REACTIONS (9)
  - ATRIAL FIBRILLATION [None]
  - ATRIAL TACHYCARDIA [None]
  - BLOOD PRESSURE DECREASED [None]
  - BRADYCARDIA [None]
  - CARDIAC ARREST [None]
  - DIZZINESS [None]
  - DYSPNOEA [None]
  - LOSS OF CONSCIOUSNESS [None]
  - NAUSEA [None]
